FAERS Safety Report 20098639 (Version 1)
Quarter: 2021Q4

REPORT INFORMATION
  Report Type: Spontaneous
  Country: FI (occurrence: FI)
  Receive Date: 20211122
  Receipt Date: 20211122
  Transmission Date: 20220303
  Serious: Yes (Hospitalization, Other)
  Sender: FDA-Public Use
  Company Number: FI-FERRINGPH-2021FE07283

PATIENT
  Age: 71 Year
  Sex: Female

DRUGS (5)
  1. PICOPREP [Suspect]
     Active Substance: ANHYDROUS CITRIC ACID\MAGNESIUM OXIDE\SODIUM PICOSULFATE
     Indication: Bowel preparation
     Dosage: 2 SACHETS
     Route: 048
     Dates: start: 20211004, end: 20211004
  2. PICOPREP [Suspect]
     Active Substance: ANHYDROUS CITRIC ACID\MAGNESIUM OXIDE\SODIUM PICOSULFATE
     Dosage: 2 SACHETS
     Route: 048
     Dates: start: 20211109, end: 20211109
  3. LEVOTHYROXINE [Concomitant]
     Active Substance: LEVOTHYROXINE
     Dosage: 100 UG, DAILY, EARLY MORNING
  4. LEVOTHYROXINE [Concomitant]
     Active Substance: LEVOTHYROXINE
     Dosage: 25 UG, DAILY, EARLY MORNING
  5. LOSARTAN POTASSIUM [Concomitant]
     Active Substance: LOSARTAN POTASSIUM
     Indication: Hypertension
     Dosage: 50 MG, DAILY, IN THE MORNING

REACTIONS (18)
  - Vomiting [Unknown]
  - Speech disorder [Unknown]
  - Amnesia [Unknown]
  - Hyponatraemia [Unknown]
  - Hypoglycaemia [Unknown]
  - Nausea [Unknown]
  - Tremor [Unknown]
  - Depressed level of consciousness [Unknown]
  - Brain oedema [Unknown]
  - Tremor [Unknown]
  - Behaviour disorder [Unknown]
  - Skin discolouration [Unknown]
  - Vomiting [Unknown]
  - Hyponatraemia [Unknown]
  - Hypoglycaemia [Unknown]
  - Body temperature increased [Unknown]
  - Product use issue [Recovered/Resolved]
  - Treatment noncompliance [Recovered/Resolved]

NARRATIVE: CASE EVENT DATE: 20211004
